FAERS Safety Report 8992371 (Version 1)
Quarter: 2012Q4

REPORT INFORMATION
  Report Type: 
  Country: US (occurrence: US)
  Receive Date: 20121231
  Receipt Date: 20121231
  Transmission Date: 20130627
  Serious: Yes (Hospitalization)
  Sender: FDA-Public Use
  Company Number: PHHY2012US120071

PATIENT
  Sex: Female

DRUGS (9)
  1. XOLAIR [Suspect]
  2. PREDNISONE [Suspect]
     Indication: INFLAMMATION
  3. HYDROCHLOROTHIAZIDE [Suspect]
  4. ADVAIR [Suspect]
  5. SPIRIVA [Suspect]
  6. SINGULAIR [Suspect]
  7. CARTIA [Suspect]
     Dosage: 360 mg
  8. DUONEB [Suspect]
  9. PROVENTIL [Suspect]

REACTIONS (6)
  - Asthma [Unknown]
  - Dyspnoea [Unknown]
  - Fear [Unknown]
  - Weight increased [Unknown]
  - Asthma [None]
  - Drug effect decreased [None]
